FAERS Safety Report 9605967 (Version 1)
Quarter: 2013Q4

REPORT INFORMATION
  Report Type: Spontaneous
  Country: US (occurrence: US)
  Receive Date: 20131008
  Receipt Date: 20131008
  Transmission Date: 20140711
  Serious: Yes (Hospitalization)
  Sender: FDA-Public Use
  Company Number: US-BAXTER-2013BAX038758

PATIENT
  Age: 2 Year
  Sex: Female
  Weight: 13.63 kg

DRUGS (8)
  1. GAMMAGARD LIQUID [Suspect]
     Indication: MYOCLONUS
     Route: 042
     Dates: start: 20121108, end: 20121108
  2. GAMMAGARD LIQUID [Suspect]
     Indication: OFF LABEL USE
  3. TYLENOL [Concomitant]
     Indication: PREMEDICATION
     Route: 065
     Dates: start: 201211
  4. OXYCODONE [Concomitant]
     Indication: PAIN
     Route: 048
     Dates: start: 20121109
  5. OXYCODONE [Concomitant]
     Indication: PYREXIA
  6. DOCUSATE SODIUM [Concomitant]
     Indication: CONSTIPATION
     Route: 048
  7. SULFAMETHOXAZOLE [Concomitant]
     Indication: PRODUCT USED FOR UNKNOWN INDICATION
     Route: 048
  8. TRIMETHOPRIM [Concomitant]
     Indication: PRODUCT USED FOR UNKNOWN INDICATION
     Route: 048

REACTIONS (4)
  - Meningitis aseptic [Recovered/Resolved]
  - Vomiting [Recovered/Resolved]
  - Dehydration [Recovered/Resolved]
  - Pyrexia [Recovered/Resolved]
